FAERS Safety Report 4277525-5 (Version None)
Quarter: 2004Q1

REPORT INFORMATION
  Report Type: 
  Country: None (occurrence: None)
  Receive Date: 20040121
  Receipt Date: 20040112
  Transmission Date: 20041129
  Serious: Yes (Death, Other)
  Sender: FDA-Public Use
  Company Number: USA040155768

PATIENT
  Age: 82 Year
  Sex: Male

DRUGS (1)
  1. XIGRIS [Suspect]
     Indication: UROSEPSIS
     Dosage: 24 UG/KG/HR
     Dates: start: 20040104, end: 20040105

REACTIONS (5)
  - ACTIVATED PARTIAL THROMBOPLASTIN TIME PROLONGED [None]
  - FIBRIN D DIMER INCREASED [None]
  - INTERNATIONAL NORMALISED RATIO INCREASED [None]
  - MYOCARDIAL INFARCTION [None]
  - PROTHROMBIN TIME PROLONGED [None]
